FAERS Safety Report 15730027 (Version 2)
Quarter: 2019Q3

REPORT INFORMATION
  Report Type: Report from Study
  Country: US (occurrence: US)
  Receive Date: 20181217
  Receipt Date: 20190725
  Transmission Date: 20191004
  Serious: Yes (Other)
  Sender: FDA-Public Use
  Company Number: US-SA-2018SA338979

PATIENT
  Age: 72 Year
  Sex: Female

DRUGS (1)
  1. INSULIN GLARGINE [Suspect]
     Active Substance: INSULIN GLARGINE
     Indication: TYPE 2 DIABETES MELLITUS
     Dosage: 60 U, HS
     Route: 058

REACTIONS (14)
  - Pulmonary embolism [Recovered/Resolved]
  - Visual impairment [Recovering/Resolving]
  - Renal failure [Not Recovered/Not Resolved]
  - Gait disturbance [Not Recovered/Not Resolved]
  - Myocardial infarction [Recovered/Resolved]
  - Myocardial infarction [Recovered/Resolved]
  - Arthropathy [Not Recovered/Not Resolved]
  - Unevaluable event [Unknown]
  - Myocardial infarction [Recovered/Resolved]
  - Cataract operation [Unknown]
  - Breast cancer female [Recovered/Resolved]
  - Bone disorder [Not Recovered/Not Resolved]
  - Inability to afford medication [Unknown]
  - Macular oedema [Recovering/Resolving]

NARRATIVE: CASE EVENT DATE: 201703
